FAERS Safety Report 5028069-4 (Version None)
Quarter: 2006Q2

REPORT INFORMATION
  Report Type: 
  Country: None (occurrence: None)
  Receive Date: 20060501
  Receipt Date: 20060224
  Transmission Date: 20061013
  Serious: No
  Sender: FDA-Public Use
  Company Number: 200611323US

PATIENT
  Sex: Female

DRUGS (1)
  1. KETEK [Suspect]
     Indication: SINUSITIS

REACTIONS (5)
  - ABDOMINAL PAIN UPPER [None]
  - CHILLS [None]
  - DYSGEUSIA [None]
  - MYALGIA [None]
  - VOMITING [None]
